FAERS Safety Report 4697254-3 (Version None)
Quarter: 2005Q2

REPORT INFORMATION
  Report Type: 
  Country: None (occurrence: None)
  Receive Date: 20050622
  Receipt Date: 20050610
  Transmission Date: 20051028
  Serious: Yes (Other)
  Sender: FDA-Public Use
  Company Number: GB-BRISTOL-MYERS SQUIBB COMPANY-13011051

PATIENT

DRUGS (4)
  1. REYATAZ [Suspect]
     Route: 064
     Dates: start: 20040806
  2. VIREAD [Suspect]
     Route: 064
     Dates: start: 20040806
  3. NORVIR [Concomitant]
     Route: 064
     Dates: start: 20040806
  4. EMTRIVA [Concomitant]
     Route: 064
     Dates: start: 20040806

REACTIONS (3)
  - FOETAL CARDIAC DISORDER [None]
  - PERICARDIAL EFFUSION [None]
  - PREGNANCY [None]
